FAERS Safety Report 12384858 (Version 2)
Quarter: 2016Q2

REPORT INFORMATION
  Report Type: Spontaneous
  Country: US (occurrence: US)
  Receive Date: 20160519
  Receipt Date: 20160525
  Transmission Date: 20160815
  Serious: Yes (Hospitalization)
  Sender: FDA-Public Use
  Company Number: PHHY2016US067072

PATIENT
  Age: 81 Year
  Sex: Male

DRUGS (1)
  1. GLIVEC [Suspect]
     Active Substance: IMATINIB MESYLATE
     Indication: GASTROINTESTINAL STROMAL TUMOUR
     Dosage: UNK
     Route: 065

REACTIONS (8)
  - Confusional state [Recovered/Resolved]
  - Portal shunt [Unknown]
  - Asthenia [Recovered/Resolved]
  - Gastrointestinal stromal tumour [Unknown]
  - Abdominal mass [Unknown]
  - Malignant neoplasm progression [Unknown]
  - Hyperammonaemic encephalopathy [Recovered/Resolved]
  - Sarcomatosis [Unknown]
